FAERS Safety Report 6604353-5 (Version None)
Quarter: 2010Q1

REPORT INFORMATION
  Report Type: 
  Country: None (occurrence: None)
  Receive Date: 20100226
  Receipt Date: 20090917
  Transmission Date: 20100710
  Serious: No
  Sender: FDA-Public Use
  Company Number: A0805180A

PATIENT
  Age: 34 Year
  Sex: Male

DRUGS (2)
  1. LAMICTAL CD [Suspect]
     Indication: EPILEPSY
     Dosage: 100MG UNKNOWN
     Route: 048
     Dates: start: 20090701
  2. TRILEPTAL [Concomitant]
     Indication: EPILEPSY
     Route: 048
     Dates: start: 20090701

REACTIONS (2)
  - ALOPECIA [None]
  - INSOMNIA [None]
